FAERS Safety Report 11571519 (Version 2)
Quarter: 2015Q4

REPORT INFORMATION
  Report Type: Spontaneous
  Country: BE (occurrence: BE)
  Receive Date: 20150929
  Receipt Date: 20151104
  Transmission Date: 20160304
  Serious: Yes (Life-Threatening, Hospitalization, Other)
  Sender: FDA-Public Use
  Company Number: BE-ELI_LILLY_AND_COMPANY-BE201509008307

PATIENT
  Sex: Male

DRUGS (4)
  1. PROLOPA [Concomitant]
     Active Substance: BENSERAZIDE\LEVODOPA
     Dosage: 750 MG, UNKNOWN
     Route: 065
  2. DEPAKINE CHRONO [Concomitant]
     Active Substance: VALPROATE SODIUM
     Dosage: 1000 MG, UNKNOWN
     Route: 065
  3. MYSOLINE [Concomitant]
     Active Substance: PRIMIDONE
     Dosage: 100 MG, UNKNOWN
  4. ZYPREXA [Suspect]
     Active Substance: OLANZAPINE
     Indication: BIPOLAR DISORDER
     Dosage: UNK, UNKNOWN
     Route: 065

REACTIONS (3)
  - Embolism [Unknown]
  - Intentional overdose [Unknown]
  - Suicide attempt [Unknown]
